FAERS Safety Report 8247287-5 (Version None)
Quarter: 2012Q1

REPORT INFORMATION
  Report Type: 
  Country: None (occurrence: None)
  Receive Date: 20120330
  Receipt Date: 20120326
  Transmission Date: 20120608
  Serious: Yes (Death, Hospitalization, Other)
  Sender: FDA-Public Use
  Company Number: US-PFIZER INC-2012077741

PATIENT
  Sex: Male
  Weight: 90.703 kg

DRUGS (2)
  1. ATGAM [Suspect]
     Indication: APLASTIC ANAEMIA
     Dosage: UNK
  2. PREDNISONE TAB [Suspect]
     Dosage: UNK

REACTIONS (13)
  - BACK PAIN [None]
  - FEELING COLD [None]
  - IRRITABILITY [None]
  - HEART RATE INCREASED [None]
  - RED BLOOD CELL COUNT DECREASED [None]
  - RASH [None]
  - GAIT DISTURBANCE [None]
  - ARTHRALGIA [None]
  - MYALGIA [None]
  - PAIN IN EXTREMITY [None]
  - HEADACHE [None]
  - PULMONARY OEDEMA [None]
  - BONE MARROW FAILURE [None]
